FAERS Safety Report 15046466 (Version 4)
Quarter: 2019Q3

REPORT INFORMATION
  Report Type: Report from Study
  Country: US (occurrence: US)
  Receive Date: 20180621
  Receipt Date: 20190703
  Transmission Date: 20191004
  Serious: Yes (Death, Other)
  Sender: FDA-Public Use
  Company Number: US-ACTELION-A-US2018-173965

PATIENT
  Sex: Male

DRUGS (3)
  1. ADEMPAS [Concomitant]
     Active Substance: RIOCIGUAT
  2. WARFARIN [Concomitant]
     Active Substance: WARFARIN
  3. TRACLEER [Suspect]
     Active Substance: BOSENTAN
     Indication: PULMONARY HYPERTENSION
     Dosage: 125 MG, BID
     Route: 048
     Dates: end: 2019

REACTIONS (10)
  - Haemoglobin abnormal [Unknown]
  - Transfusion [Unknown]
  - Death [Fatal]
  - Dyspnoea [Unknown]
  - Dyspnoea at rest [Unknown]
  - Chronic gastrointestinal bleeding [Unknown]
  - Infusion [Unknown]
  - Chest pain [Unknown]
  - Malaise [Unknown]
  - Hospice care [Unknown]
